FAERS Safety Report 4685610-9 (Version None)
Quarter: 2005Q2

REPORT INFORMATION
  Report Type: 
  Country: None (occurrence: None)
  Receive Date: 20050608
  Receipt Date: 20050601
  Transmission Date: 20051028
  Serious: Yes (Hospitalization)
  Sender: FDA-Public Use
  Company Number: J081-002-001965

PATIENT
  Age: 79 Year
  Sex: Male

DRUGS (6)
  1. ARICEPT [Suspect]
     Indication: DEMENTIA ALZHEIMER'S TYPE
     Dosage: SEE IMAGE
     Route: 048
     Dates: start: 20031107, end: 20031120
  2. ARICEPT [Suspect]
     Indication: DEMENTIA ALZHEIMER'S TYPE
     Dosage: SEE IMAGE
     Route: 048
     Dates: start: 20031121
  3. GLUCOBAY [Concomitant]
  4. CARNACULIN (KALLIDINOGENASE) [Concomitant]
  5. PANALDINE (TICLOPIDINE HYDROCHLORIDE) [Concomitant]
  6. JUVELA NICOTINATE (TOCOPHERYL NICOTINATE) [Concomitant]

REACTIONS (2)
  - ECZEMA [None]
  - PEMPHIGOID [None]
